FAERS Safety Report 10570262 (Version 1)
Quarter: 2014Q4

REPORT INFORMATION
  Report Type: Spontaneous
  Country: IR (occurrence: None)
  Receive Date: 20141105
  Receipt Date: 20141105
  Transmission Date: 20150529
  Serious: Yes (Hospitalization)
  Sender: FDA-Public Use
  Company Number: IMP-08012_2014

PATIENT
  Age: 28 Year
  Sex: Female

DRUGS (2)
  1. CLONAZEPAM. [Suspect]
     Active Substance: CLONAZEPAM
     Indication: PRODUCT USED FOR UNKNOWN INDICATION
     Dosage: (DF (ONCE) ORAL)
     Route: 048
  2. DIVALPROEX SODIUM. [Suspect]
     Active Substance: DIVALPROEX SODIUM
     Dosage: 1 X (ONCE) ORAL), (DF)
     Route: 048

REACTIONS (4)
  - Somnolence [None]
  - Intentional overdose [None]
  - Miosis [None]
  - Suicide attempt [None]
